FAERS Safety Report 4578108-X (Version None)
Quarter: 2005Q1

REPORT INFORMATION
  Report Type: 
  Country: None (occurrence: None)
  Receive Date: 20050202
  Receipt Date: 20050202
  Transmission Date: 20050727
  Serious: Yes (Other)
  Sender: FDA-Public Use
  Company Number: None

PATIENT
  Age: 52 Year
  Sex: Male

DRUGS (1)
  1. RANITIDINE [Suspect]
     Dosage: 150 MG BID PO
     Route: 048
     Dates: start: 20040608, end: 20040624

REACTIONS (4)
  - AGITATION [None]
  - DIZZINESS [None]
  - FEELING ABNORMAL [None]
  - PHARMACEUTICAL PRODUCT COMPLAINT [None]
